FAERS Safety Report 6804141 (Version 2)
Quarter: 2013Q1

REPORT INFORMATION
  Report Type: Spontaneous
  Country: NL (occurrence: None)
  Receive Date: 20081023
  Receipt Date: 20130114
  Transmission Date: 20140127
  Serious: Yes (Hospitalization)
  Sender: FDA-Public Use
  Company Number: 2008AP002782

PATIENT
  Age: 61 Year
  Sex: Female

DRUGS (8)
  1. TIMONIL [Suspect]
     Indication: EPILEPSY
     Dosage: 450 MG; BID PO
     Route: 048
     Dates: start: 200808, end: 20080915
  2. ATENOLOL (ATENOLOL) [Concomitant]
  3. ESTRADIOL VALERATE (ESTRADIOL VALERATE) [Concomitant]
  4. CITALOPRAM HYDROBROMIDE [Concomitant]
  5. MIRTAZAPINE (MIRTAZAPINE) [Concomitant]
  6. SERETIDE  (SERETIDE) [Concomitant]
  7. HYDROCHLOROTHIAZIDE (HYDROCHLOROTHIAZIDE) [Concomitant]
  8. AMILORIDE HYDROCHLORIDE (AMILORIDE HYDROCHLORIDE) [Concomitant]

REACTIONS (11)
  - Hyponatraemia [None]
  - Nausea [None]
  - Neck pain [None]
  - Headache [None]
  - Pyrexia [None]
  - Condition aggravated [None]
  - White blood cell count increased [None]
  - Blood alkaline phosphatase increased [None]
  - Aspartate aminotransferase increased [None]
  - Alanine aminotransferase increased [None]
  - Gamma-glutamyltransferase increased [None]
